FAERS Safety Report 24290492 (Version 1)
Quarter: 2024Q3

REPORT INFORMATION
  Report Type: Spontaneous
  Country: GB (occurrence: GB)
  Receive Date: 20240906
  Receipt Date: 20240906
  Transmission Date: 20241016
  Serious: Yes (Disabling, Other)
  Sender: RANBAXY
  Company Number: GB-MHRA-MIDB-254897d2-bcf9-4b96-a590-bc71731a297c

PATIENT
  Age: 78 Year
  Sex: Male

DRUGS (12)
  1. LANSOPRAZOLE [Suspect]
     Active Substance: LANSOPRAZOLE
     Indication: Product used for unknown indication
     Dosage: 30 MILLIGRAM, DAILY
     Route: 065
  2. PERINDOPRIL [Suspect]
     Active Substance: PERINDOPRIL
     Indication: Product used for unknown indication
     Dosage: 8 MILLIGRAM, DAILY
     Route: 065
     Dates: end: 20240813
  3. DILTIAZEM [Concomitant]
     Active Substance: DILTIAZEM
     Indication: Product used for unknown indication
     Dosage: MR 400MG OD
     Route: 065
  4. Ensures [Concomitant]
     Indication: Product used for unknown indication
     Dosage: TDS
     Route: 065
  5. SIMVASTATIN [Concomitant]
     Active Substance: SIMVASTATIN
     Indication: Product used for unknown indication
     Dosage: 20MG ON
     Route: 065
  6. DOCUSATE [Concomitant]
     Active Substance: DOCUSATE
     Indication: Product used for unknown indication
     Dosage: 100-200MG ON
     Route: 065
  7. CHOLECALCIFEROL [Concomitant]
     Active Substance: CHOLECALCIFEROL
     Indication: Product used for unknown indication
     Dosage: EXPIRY: 8/2024
     Route: 065
     Dates: start: 20240813
  8. clinitas eye gel [Concomitant]
     Indication: Product used for unknown indication
     Route: 065
  9. trelegy ellipta inhaler [Concomitant]
     Indication: Product used for unknown indication
     Dosage: X1 PUFF DAILY
     Route: 065
  10. DALTEPARIN [Concomitant]
     Active Substance: DALTEPARIN
     Indication: Product used for unknown indication
     Dosage: EXPIRY: 8/2024 7,500UNITS SC OD
     Route: 058
     Dates: end: 20240813
  11. SALAMOL INHALER [Concomitant]
     Indication: Product used for unknown indication
     Route: 065
  12. DOXAZOSIN [Concomitant]
     Active Substance: DOXAZOSIN MESYLATE
     Indication: Product used for unknown indication
     Dosage: 4MG BD
     Route: 065

REACTIONS (1)
  - Hyponatraemia [Unknown]
